FAERS Safety Report 21328144 (Version 1)
Quarter: 2022Q3

REPORT INFORMATION
  Report Type: Spontaneous
  Country: DE (occurrence: DE)
  Receive Date: 20220913
  Receipt Date: 20220913
  Transmission Date: 20221027
  Serious: Yes (Death, Hospitalization)
  Sender: FDA-Public Use
  Company Number: DE-002147023-NVSC2022DE177839

PATIENT
  Age: 74 Year
  Sex: Female

DRUGS (1)
  1. ALBUTEROL [Suspect]
     Active Substance: ALBUTEROL
     Indication: Asthma
     Dosage: UNK (4X) EVERY 3-4 HOURS
     Route: 065
     Dates: start: 2018, end: 2018

REACTIONS (1)
  - Choking [Fatal]

NARRATIVE: CASE EVENT DATE: 20180721
